FAERS Safety Report 8518886 (Version 4)
Quarter: 2013Q2

REPORT INFORMATION
  Report Type: Spontaneous
  Country: US (occurrence: None)
  Receive Date: 20120411
  Receipt Date: 20130409
  Transmission Date: 20140414
  Serious: Yes (Life-Threatening, Hospitalization, Other)
  Sender: FDA-Public Use
  Company Number: ADR-2012-00673

PATIENT
  Sex: Male

DRUGS (5)
  1. LIORESAL [Suspect]
     Indication: BRAIN INJURY
     Dosage: 500MCG/ML, 30MCG/DAY
     Route: 037
  2. LIORESAL [Suspect]
     Indication: MUSCLE SPASTICITY
     Dosage: 500MCG/ML, 30MCG/DAY
     Route: 037
  3. ATAVAN [Concomitant]
  4. VALIUM [Concomitant]
  5. ANTIBIOTICS [Concomitant]

REACTIONS (9)
  - Toxic encephalopathy [None]
  - Incorrect dose administered [None]
  - Hypotension [None]
  - Bradycardia [None]
  - Depressed level of consciousness [None]
  - Status epilepticus [None]
  - Overdose [None]
  - Pneumonia aspiration [None]
  - Convulsion [None]
